FAERS Safety Report 6782502-6 (Version None)
Quarter: 2010Q2

REPORT INFORMATION
  Report Type: 
  Country: None (occurrence: None)
  Receive Date: 20100616
  Receipt Date: 20100607
  Transmission Date: 20101027
  Serious: Yes (Death)
  Sender: FDA-Public Use
  Company Number: DSA_43232_2010

PATIENT
  Age: 45 Year
  Sex: Female

DRUGS (2)
  1. XENAZINE [Suspect]
     Indication: DYSTONIA
     Dosage: DF
  2. SABRIL [Concomitant]

REACTIONS (1)
  - SUDDEN DEATH [None]
